FAERS Safety Report 21338552 (Version 1)
Quarter: 2022Q3

REPORT INFORMATION
  Report Type: Spontaneous
  Country: US (occurrence: None)
  Receive Date: 20220915
  Receipt Date: 20220915
  Transmission Date: 20221027
  Serious: Yes (Hospitalization, Other)
  Sender: FDA-Public Use
  Company Number: 2022A311978

PATIENT
  Age: 837 Month
  Sex: Male
  Weight: 90.7 kg

DRUGS (4)
  1. BRILINTA [Suspect]
     Active Substance: TICAGRELOR
     Indication: Stent placement
     Route: 048
     Dates: start: 20220818
  2. METOPROLOL [Concomitant]
     Active Substance: METOPROLOL
     Indication: Hypotension
     Route: 048
     Dates: start: 2018
  3. ASPIRIN [Concomitant]
     Active Substance: ASPIRIN
     Indication: Anticoagulant therapy
     Route: 048
     Dates: start: 2018
  4. ATORVASTATIN [Concomitant]
     Active Substance: ATORVASTATIN
     Indication: Anticoagulant therapy
     Route: 048
     Dates: start: 2018

REACTIONS (9)
  - Loss of consciousness [Recovered/Resolved]
  - Haemoglobin decreased [Recovering/Resolving]
  - Haemorrhage [Recovering/Resolving]
  - Hypotension [Recovering/Resolving]
  - Faeces discoloured [Recovering/Resolving]
  - Colitis [Recovering/Resolving]
  - Diverticulum intestinal [Recovered/Resolved]
  - Abnormal faeces [Recovering/Resolving]
  - Tachycardia [Recovering/Resolving]

NARRATIVE: CASE EVENT DATE: 20210801
